FAERS Safety Report 8675072 (Version 2)
Quarter: 2013Q1

REPORT INFORMATION
  Report Type: Spontaneous
  Country: US (occurrence: US)
  Receive Date: 20120720
  Receipt Date: 20130305
  Transmission Date: 20140127
  Serious: Yes (Hospitalization, Other)
  Sender: FDA-Public Use
  Company Number: US-TEVA-349039USA

PATIENT
  Age: 66 Year
  Sex: Female
  Weight: 85.81 kg

DRUGS (2)
  1. TREANDA [Suspect]
     Indication: CHRONIC LYMPHOCYTIC LEUKAEMIA
     Dosage: EVERY 28 DAYS
     Route: 042
     Dates: start: 20120323, end: 20120502
  2. RITUXAN [Suspect]
     Dosage: EVERY 28 DAYS
     Route: 042
     Dates: start: 20120323, end: 20120503

REACTIONS (3)
  - Atrial fibrillation [Unknown]
  - Embolic stroke [Unknown]
  - Febrile neutropenia [Unknown]
